FAERS Safety Report 17396015 (Version 2)
Quarter: 2020Q1

REPORT INFORMATION
  Report Type: Spontaneous
  Country: US (occurrence: US)
  Receive Date: 20200210
  Receipt Date: 20200305
  Transmission Date: 20200409
  Serious: No
  Sender: FDA-Public Use
  Company Number: US-VERTEX PHARMACEUTICALS-2020-002038

PATIENT
  Sex: Male

DRUGS (3)
  1. ORKAMBI [Suspect]
     Active Substance: IVACAFTOR\LUMACAFTOR
     Indication: CYSTIC FIBROSIS
     Dosage: 150/188 MG GRANULES, BID
     Route: 048
     Dates: start: 20190605
  2. PULMOZYME [Concomitant]
     Active Substance: DORNASE ALFA
  3. PEDIASURE [NUTRIENTS NOS] [Concomitant]

REACTIONS (1)
  - Malaise [Unknown]
